FAERS Safety Report 9437980 (Version 1)
Quarter: 2013Q3

REPORT INFORMATION
  Report Type: Spontaneous
  Country: US (occurrence: US)
  Receive Date: 20130802
  Receipt Date: 20130802
  Transmission Date: 20140515
  Serious: No
  Sender: FDA-Public Use
  Company Number: US-BRISTOL-MYERS SQUIBB COMPANY-16670549

PATIENT
  Age: 80 Year
  Sex: Male
  Weight: 90.7 kg

DRUGS (1)
  1. COUMADIN [Suspect]
     Indication: MITRAL VALVE REPLACEMENT
     Dosage: 03,06JUN12:4MG,?02JUN12:2MG,LOT:9L49868A EXP:DEC2012?05JUN12:3MG100TABS

REACTIONS (2)
  - International normalised ratio fluctuation [Unknown]
  - Product container seal issue [Unknown]
